FAERS Safety Report 16310585 (Version 1)
Quarter: 2019Q2

REPORT INFORMATION
  Report Type: Spontaneous
  Country: US (occurrence: US)
  Receive Date: 20190513
  Receipt Date: 20190513
  Transmission Date: 20190711
  Serious: Yes (Other)
  Sender: FDA-Public Use
  Company Number: None

PATIENT
  Sex: Male

DRUGS (1)
  1. ZUBSOLV [Suspect]
     Active Substance: BUPRENORPHINE HYDROCHLORIDE\NALOXONE HYDROCHLORIDE
     Indication: PRODUCT USED FOR UNKNOWN INDICATION
     Dosage: ?          QUANTITY:28 TABLET(S);?
     Route: 060
     Dates: start: 20190506

REACTIONS (7)
  - Dyspnoea [None]
  - Somnolence [None]
  - Constipation [None]
  - Back pain [None]
  - Nausea [None]
  - Product substitution issue [None]
  - Feeling hot [None]

NARRATIVE: CASE EVENT DATE: 20190507
